FAERS Safety Report 15532817 (Version 2)
Quarter: 2018Q4

REPORT INFORMATION
  Report Type: Report from Study
  Country: AU (occurrence: AU)
  Receive Date: 20181019
  Receipt Date: 20181106
  Transmission Date: 20190205
  Serious: Yes (Other)
  Sender: FDA-Public Use
  Company Number: AU-ROCHE-2202558

PATIENT
  Sex: Male

DRUGS (3)
  1. OMALIZUMAB. [Suspect]
     Active Substance: OMALIZUMAB
     Route: 065
  2. OMALIZUMAB. [Suspect]
     Active Substance: OMALIZUMAB
     Indication: CHRONIC SPONTANEOUS URTICARIA
     Route: 065
  3. OMALIZUMAB. [Suspect]
     Active Substance: OMALIZUMAB
     Route: 065
     Dates: start: 20181031

REACTIONS (2)
  - Pruritus [Unknown]
  - Drug effect incomplete [Unknown]
